FAERS Safety Report 9722853 (Version 1)
Quarter: 2013Q4

REPORT INFORMATION
  Report Type: Spontaneous
  Country: US (occurrence: None)
  Receive Date: 20131127
  Receipt Date: 20131127
  Transmission Date: 20140711
  Serious: Yes (Hospitalization)
  Sender: FDA-Public Use
  Company Number: None

PATIENT
  Age: 70 Year
  Sex: Female
  Weight: 47 kg

DRUGS (1)
  1. XELODA [Suspect]

REACTIONS (8)
  - Postoperative ileus [None]
  - Tachypnoea [None]
  - Tachycardia [None]
  - Oxygen saturation decreased [None]
  - Abdominal distension [None]
  - Anastomotic complication [None]
  - Wound dehiscence [None]
  - Impaired healing [None]
